FAERS Safety Report 5228712-0 (Version None)
Quarter: 2007Q1

REPORT INFORMATION
  Report Type: 
  Country: None (occurrence: None)
  Receive Date: 20070205
  Receipt Date: 20070123
  Transmission Date: 20070707
  Serious: Yes (Other)
  Sender: FDA-Public Use
  Company Number: PHRM2007FR00597

PATIENT
  Age: 65 Year
  Sex: Female

DRUGS (3)
  1. ZOMETA [Suspect]
     Indication: METASTASES TO BONE
     Route: 042
     Dates: start: 20060801
  2. HERCEPTIN [Concomitant]
     Indication: METASTASES TO LUNG
     Dates: start: 20040708
  3. CAELYX [Concomitant]
     Indication: BREAST CANCER METASTATIC
     Route: 042
     Dates: start: 20061027

REACTIONS (2)
  - BONE DISORDER [None]
  - OSTEONECROSIS [None]
